FAERS Safety Report 6269885-0 (Version None)
Quarter: 2009Q3

REPORT INFORMATION
  Report Type: 
  Country: None (occurrence: None)
  Receive Date: 20090716
  Receipt Date: 20070625
  Transmission Date: 20100115
  Serious: Yes (Other)
  Sender: FDA-Public Use
  Company Number: US-ASTRAZENECA-2006UW25255

PATIENT
  Age: 59 Year
  Sex: Male
  Weight: 89.8 kg

DRUGS (28)
  1. SEROQUEL [Suspect]
     Indication: DEPRESSION
     Dosage: 100 TO 400 MG, FLUCTUATING
     Route: 048
     Dates: start: 20031013, end: 20040205
  2. SEROQUEL [Suspect]
     Route: 048
     Dates: start: 20031101, end: 20051201
  3. GLUCOVANCE [Concomitant]
     Dosage: 5 MG/500 MG, TWO TIMES A DAY
     Route: 048
  4. ACTOS [Concomitant]
     Route: 065
  5. XANAX [Concomitant]
     Route: 065
  6. COREG [Concomitant]
     Route: 048
  7. ZOCOR [Concomitant]
     Route: 065
  8. ZETIA [Concomitant]
     Route: 065
  9. ASPIRIN [Concomitant]
     Route: 065
  10. PERCOCET [Concomitant]
     Dosage: 10 MG/325 MG, FOUR TIMES A DAY
     Route: 065
  11. LISINOPRIL [Concomitant]
     Route: 048
  12. CIALIS [Concomitant]
     Route: 048
  13. EFFEXOR [Concomitant]
     Route: 048
  14. ELAVIL [Concomitant]
     Route: 048
  15. LIBRIUM [Concomitant]
     Route: 065
  16. LIPITOR [Concomitant]
     Indication: HYPERLIPIDAEMIA
     Route: 048
  17. MONOPRIL [Concomitant]
     Route: 048
  18. NEURONTIN [Concomitant]
     Route: 048
  19. PLAVIX [Concomitant]
     Route: 048
  20. PRAVACHOL [Concomitant]
     Route: 048
     Dates: start: 20070622
  21. PRILOSEC [Concomitant]
     Route: 048
  22. TEGRETOL [Concomitant]
     Indication: NEUROPATHY PERIPHERAL
     Route: 048
  23. LYRICA [Concomitant]
     Indication: NEUROPATHY PERIPHERAL
     Route: 048
     Dates: start: 20060225
  24. VIAGRA [Concomitant]
     Route: 048
  25. UROXATRAL [Concomitant]
     Indication: BENIGN PROSTATIC HYPERPLASIA
     Route: 048
  26. MAXZIDE [Concomitant]
     Dosage: 25 MG/37.5 MG
     Route: 048
  27. MIDAZOLAM HCL [Concomitant]
     Route: 048
  28. WELLBUTRIN XL [Concomitant]
     Route: 048
     Dates: start: 20061213

REACTIONS (4)
  - DIABETES MELLITUS [None]
  - DIABETES MELLITUS INADEQUATE CONTROL [None]
  - ORGANIC ERECTILE DYSFUNCTION [None]
  - PARAESTHESIA [None]
